FAERS Safety Report 20164924 (Version 2)
Quarter: 2022Q1

REPORT INFORMATION
  Report Type: Spontaneous
  Country: CN (occurrence: CN)
  Receive Date: 20211209
  Receipt Date: 20220201
  Transmission Date: 20220423
  Serious: Yes (Hospitalization)
  Sender: FDA-Public Use
  Company Number: CN-ASPEN-GLO2021CN009629

PATIENT

DRUGS (13)
  1. LEUKERAN [Suspect]
     Active Substance: CHLORAMBUCIL
     Indication: Chronic lymphocytic leukaemia
     Dosage: 22 MG, SINGLE
     Route: 048
     Dates: start: 20210810, end: 20210810
  2. LEUKERAN [Suspect]
     Active Substance: CHLORAMBUCIL
     Dosage: 22 MG, SINGLE
     Route: 048
     Dates: start: 20210824, end: 20210824
  3. LEUKERAN [Suspect]
     Active Substance: CHLORAMBUCIL
     Dosage: 22 MG, SINGLE
     Route: 048
     Dates: start: 20210907, end: 20210908
  4. LEUKERAN [Suspect]
     Active Substance: CHLORAMBUCIL
     Dosage: 22 MG, SINGLE
     Route: 048
     Dates: start: 20210923, end: 20210923
  5. LEUKERAN [Suspect]
     Active Substance: CHLORAMBUCIL
     Dosage: 22 MG, SINGLE
     Route: 048
     Dates: start: 20211009, end: 20211009
  6. LEUKERAN [Suspect]
     Active Substance: CHLORAMBUCIL
     Dosage: 22 MG, SINGLE
     Route: 048
     Dates: start: 20211020, end: 20211020
  7. LEUKERAN [Suspect]
     Active Substance: CHLORAMBUCIL
     Dosage: 22 MG, SINGLE
     Route: 048
     Dates: start: 20211103, end: 20211103
  8. LEUKERAN [Suspect]
     Active Substance: CHLORAMBUCIL
     Dosage: 22 MG, SINGLE
     Route: 048
     Dates: start: 20211117, end: 20211117
  9. LEUKERAN [Suspect]
     Active Substance: CHLORAMBUCIL
     Dosage: UNK
  10. RITUXIMAB [Suspect]
     Active Substance: RITUXIMAB
     Indication: Chronic lymphocytic leukaemia
     Dosage: 530 MG, SINGLE,
     Route: 041
     Dates: start: 20210810, end: 20210810
  11. RITUXIMAB [Suspect]
     Active Substance: RITUXIMAB
     Dosage: 700 MG, SINGLE
     Route: 041
     Dates: start: 20210907, end: 20210908
  12. RITUXIMAB [Suspect]
     Active Substance: RITUXIMAB
     Dosage: 700 MG, SINGLE
     Route: 041
     Dates: start: 20211009, end: 20211009
  13. RITUXIMAB [Suspect]
     Active Substance: RITUXIMAB
     Dosage: 730 MG, SINGLE
     Route: 041
     Dates: start: 20211103, end: 20211103

REACTIONS (1)
  - Abscess limb [Recovered/Resolved]

NARRATIVE: CASE EVENT DATE: 20211121
